FAERS Safety Report 19411601 (Version 1)
Quarter: 2021Q2

REPORT INFORMATION
  Report Type: Spontaneous
  Country: JP (occurrence: JP)
  Receive Date: 20210614
  Receipt Date: 20210614
  Transmission Date: 20210717
  Serious: Yes (Hospitalization, Other)
  Sender: FDA-Public Use
  Company Number: JP-GLAXOSMITHKLINE-JP2021JPN060653

PATIENT
  Age: 73 Year
  Sex: Male

DRUGS (14)
  1. SERETIDE [Suspect]
     Active Substance: FLUTICASONE PROPIONATE\SALMETEROL XINAFOATE
     Dosage: 250 ?G, QD
     Route: 055
  2. SUINY [Concomitant]
     Active Substance: ANAGLIPTIN
     Dosage: 100 MG, QD AFTER BREAKFAST
  3. FUROSEMIDE. [Concomitant]
     Active Substance: FUROSEMIDE
     Dosage: 40 MG, QD AFTER BREAKFAST
  4. JUSO [Concomitant]
     Active Substance: SODIUM BICARBONATE
     Dosage: 500 MG, TID AFTER BREAKFAST, LUNCH, DINNER
  5. AMIODARONE HYDROCHLORIDE. [Concomitant]
     Active Substance: AMIODARONE HYDROCHLORIDE
     Dosage: 100 MG, QD AFTER BREAKFAST
  6. WARFARIN (JAPANESE TRADENAME) [Concomitant]
     Active Substance: WARFARIN POTASSIUM
     Dosage: 0.5 MG, QD AFTER BREAKFAST
  7. MAINTATE [Concomitant]
     Active Substance: BISOPROLOL FUMARATE
     Dosage: 2.5 MG, QD AFTER BREAKFAST
  8. DUVROQ [Suspect]
     Active Substance: DAPRODUSTAT
     Indication: NEPHROGENIC ANAEMIA
     Dosage: 2 MG, QD AFTER BREAKFAST
     Route: 048
     Dates: start: 20210118, end: 20210212
  9. DUVROQ [Suspect]
     Active Substance: DAPRODUSTAT
     Dosage: 4 MG, 1D
     Route: 048
     Dates: start: 20210213, end: 20210225
  10. LIVALO [Concomitant]
     Active Substance: PITAVASTATIN CALCIUM
     Dosage: 2 MG, QD AFTER BREAKFAST
  11. AMLODIPINE BESILATE [Concomitant]
     Active Substance: AMLODIPINE BESYLATE
     Dosage: 5 MG, QD AFTER BREAKFAST
  12. KREMEZIN [Concomitant]
     Active Substance: ACTIVATED CHARCOAL
     Dosage: 500 MG, TID AFTER BREAKFAST, LUNCH, DINNER
  13. NEXIUM [Concomitant]
     Active Substance: ESOMEPRAZOLE MAGNESIUM
     Dosage: 20 MG, QD AFTER BREAKFAST
  14. DUVROQ [Suspect]
     Active Substance: DAPRODUSTAT
     Dosage: 2 MG, 1D
     Route: 048
     Dates: start: 20210226, end: 20210303

REACTIONS (8)
  - Chronic kidney disease [Unknown]
  - Peritoneal dialysis [Unknown]
  - Haemoglobin increased [Unknown]
  - Cardiac failure [Recovering/Resolving]
  - Product use issue [Unknown]
  - Nephrogenic anaemia [Unknown]
  - Hypertrophic cardiomyopathy [Unknown]
  - Prescribed underdose [Unknown]

NARRATIVE: CASE EVENT DATE: 2021
